FAERS Safety Report 6456704-2 (Version None)
Quarter: 2009Q4

REPORT INFORMATION
  Report Type: 
  Country: None (occurrence: None)
  Receive Date: 20091120
  Receipt Date: 20091001
  Transmission Date: 20100525
  Serious: Yes (Hospitalization)
  Sender: FDA-Public Use
  Company Number: 091001-000089

PATIENT
  Age: 56 Year
  Sex: Female

DRUGS (4)
  1. MEANINGFUL BEAUTY, SPF 3-5% [Suspect]
     Indication: SKIN COSMETIC PROCEDURE
     Dosage: DAILY, TOPICAL
     Route: 061
  2. MEDICATIONS FOR BLOOD PRESSURE [Concomitant]
  3. MEDICATIONS FOR THYROID [Concomitant]
  4. NERVE ENDING MEDICATIONS [Concomitant]

REACTIONS (3)
  - RASH [None]
  - THROAT TIGHTNESS [None]
  - URTICARIA [None]
